FAERS Safety Report 17443824 (Version 1)
Quarter: 2020Q1

REPORT INFORMATION
  Report Type: Spontaneous
  Country: US (occurrence: US)
  Receive Date: 20200220
  Receipt Date: 20200220
  Transmission Date: 20200409
  Serious: Yes (Hospitalization)
  Sender: FDA-Public Use
  Company Number: None

PATIENT
  Age: 39 Year
  Sex: Female

DRUGS (1)
  1. ZEJULA [Suspect]
     Active Substance: NIRAPARIB
     Indication: OVARIAN CANCER
     Route: 048
     Dates: start: 20200122

REACTIONS (9)
  - Decreased appetite [None]
  - Intestinal obstruction [None]
  - Therapy cessation [None]
  - Blood creatinine increased [None]
  - Vomiting [None]
  - Nausea [None]
  - Abdominal pain [None]
  - Insomnia [None]
  - Abdominal discomfort [None]

NARRATIVE: CASE EVENT DATE: 20200219
